FAERS Safety Report 8117009-7 (Version None)
Quarter: 2012Q1

REPORT INFORMATION
  Report Type: 
  Country: None (occurrence: None)
  Receive Date: 20120206
  Receipt Date: 20120130
  Transmission Date: 20120608
  Serious: Yes (Hospitalization)
  Sender: FDA-Public Use
  Company Number: US-US-EMD SERONO, INC.-7110181

PATIENT
  Sex: Female

DRUGS (2)
  1. REBIF [Suspect]
     Route: 058
     Dates: start: 20120110
  2. REBIF [Suspect]
     Indication: PRODUCT USED FOR UNKNOWN INDICATION

REACTIONS (1)
  - LOWER LIMB FRACTURE [None]
